FAERS Safety Report 4789705-0 (Version None)
Quarter: 2005Q4

REPORT INFORMATION
  Report Type: 
  Country: None (occurrence: None)
  Receive Date: 20051005
  Receipt Date: 20051005
  Transmission Date: 20060501
  Serious: Yes (Hospitalization)
  Sender: FDA-Public Use
  Company Number: None

PATIENT
  Age: 46 Year
  Sex: Male
  Weight: 65.1 kg

DRUGS (14)
  1. CEFEPIME [Suspect]
     Indication: PNEUMONIA STAPHYLOCOCCAL
     Dosage: IV
     Route: 042
     Dates: start: 20040626, end: 20040714
  2. VANCOMYCIN [Suspect]
     Indication: BACTERIAL SEPSIS
     Dosage: IV
     Route: 042
     Dates: start: 20040626, end: 20040714
  3. GENTAMICIN [Suspect]
     Dosage: IV
     Route: 042
     Dates: start: 20040626, end: 20040714
  4. ACYCLOVIR [Concomitant]
  5. EPOETIN ALPHA [Concomitant]
  6. LANSOPRAZOLE [Concomitant]
  7. M.V.I. [Concomitant]
  8. OXYCODONE HCL [Concomitant]
  9. LORAZEPAM [Concomitant]
  10. HUMULIN 70/30 [Concomitant]
  11. IBUPROFEN [Concomitant]
  12. METOPROLOL [Concomitant]
  13. FUROSEMIDE [Concomitant]
  14. SERTRALINE HCL [Concomitant]

REACTIONS (1)
  - CLOSTRIDIUM COLITIS [None]
